FAERS Safety Report 23465833 (Version 6)
Quarter: 2025Q3

REPORT INFORMATION
  Report Type: Spontaneous
  Country: IN (occurrence: IN)
  Receive Date: 20240201
  Receipt Date: 20250919
  Transmission Date: 20251020
  Serious: Yes (Hospitalization, Other)
  Sender: PFIZER
  Company Number: IN-PFIZER INC-PV202200057060

PATIENT
  Age: 59 Year
  Sex: Female
  Weight: 67 kg

DRUGS (15)
  1. PALBOCICLIB [Suspect]
     Active Substance: PALBOCICLIB
     Dosage: 125 MG, 1X/DAY
     Route: 048
     Dates: start: 202206, end: 202209
  2. PALBOCICLIB [Suspect]
     Active Substance: PALBOCICLIB
     Dosage: 100 MG, 1X/DAY
  3. PALBOCICLIB [Suspect]
     Active Substance: PALBOCICLIB
     Dates: start: 202208
  4. PALBOCICLIB [Suspect]
     Active Substance: PALBOCICLIB
     Route: 048
  5. PALBOCICLIB [Suspect]
     Active Substance: PALBOCICLIB
     Dosage: 75 MG, ALTERNATE DAY
  6. DAPAGLYN [Concomitant]
     Dates: start: 2017
  7. GLIZID [Concomitant]
     Dates: start: 2017
  8. METOPROLOL SUCCINATE [Concomitant]
     Active Substance: METOPROLOL SUCCINATE
     Dates: start: 2017
  9. LINAGLIPTIN\METFORMIN HYDROCHLORIDE [Concomitant]
     Active Substance: LINAGLIPTIN\METFORMIN HYDROCHLORIDE
     Dates: start: 2017
  10. ULTRACET [Concomitant]
     Active Substance: ACETAMINOPHEN\TRAMADOL HYDROCHLORIDE
     Indication: Analgesic therapy
     Dosage: UNK, 2X/DAY (TWICE A DAY 1 MONTH)
     Dates: start: 202208
  11. ZOLEDAC [Concomitant]
     Indication: Bone pain
     Dates: start: 202208
  12. LETROZOLE [Concomitant]
     Active Substance: LETROZOLE
     Dosage: 2.5 MG, 1X/DAY
  13. CALCIUM CARBONATE\CHOLECALCIFEROL [Concomitant]
     Active Substance: CALCIUM CARBONATE\CHOLECALCIFEROL
     Dosage: UNK, 1X/DAY
  14. CALCIUM [Concomitant]
     Active Substance: CALCIUM
  15. VITAMIN D NOS [Concomitant]
     Active Substance: CHOLECALCIFEROL\ERGOCALCIFEROL

REACTIONS (13)
  - Meningitis listeria [Unknown]
  - Lower respiratory tract infection [Unknown]
  - Sepsis [Unknown]
  - White blood cell count decreased [Unknown]
  - Weight increased [Unknown]
  - Metastases to bone [Unknown]
  - Bone pain [Unknown]
  - Rash [Recovered/Resolved]
  - Pruritus genital [Recovered/Resolved]
  - Back pain [Unknown]
  - Neutrophil count decreased [Unknown]
  - Weight decreased [Unknown]
  - Off label use [Unknown]

NARRATIVE: CASE EVENT DATE: 20220704
